FAERS Safety Report 8086004-9 (Version None)
Quarter: 2012Q1

REPORT INFORMATION
  Report Type: 
  Country: None (occurrence: None)
  Receive Date: 20120128
  Receipt Date: 20110412
  Transmission Date: 20120608
  Serious: No
  Sender: FDA-Public Use
  Company Number: US-ABBOTT-11P-163-0718890-00

PATIENT
  Sex: Female
  Weight: 84.898 kg

DRUGS (8)
  1. DIOVAN HCT [Concomitant]
     Indication: HYPERTENSION
  2. VITAMIN D [Concomitant]
     Indication: VITAMIN SUPPLEMENTATION
  3. LEVOXYL [Concomitant]
     Indication: HYPOTHYROIDISM
  4. LIALDA [Concomitant]
     Indication: CROHN'S DISEASE
  5. HUMIRA [Suspect]
     Indication: CROHN'S DISEASE
     Dates: start: 20101001
  6. NEXIUM [Concomitant]
     Indication: GASTROOESOPHAGEAL REFLUX DISEASE
  7. ALENDRONATE SODIUM [Concomitant]
     Indication: OSTEOPOROSIS
  8. SIMVASTATIN [Concomitant]
     Indication: BLOOD CHOLESTEROL INCREASED

REACTIONS (5)
  - NASAL CONGESTION [None]
  - SINUSITIS [None]
  - DRUG DOSE OMISSION [None]
  - NASOPHARYNGITIS [None]
  - HEADACHE [None]
